FAERS Safety Report 14859321 (Version 1)
Quarter: 2018Q2

REPORT INFORMATION
  Report Type: Spontaneous
  Country: US (occurrence: US)
  Receive Date: 20180508
  Receipt Date: 20180508
  Transmission Date: 20180711
  Serious: No
  Sender: FDA-Public Use
  Company Number: US-ALLERGAN-1747484US

PATIENT
  Age: 19 Year
  Sex: Female
  Weight: 54 kg

DRUGS (1)
  1. MICROGESTIN 1.5/30 [Suspect]
     Active Substance: ETHINYL ESTRADIOL\NORETHINDRONE ACETATE
     Indication: MENSTRUAL DISORDER
     Dosage: UNK
     Route: 065
     Dates: start: 20170725

REACTIONS (2)
  - Off label use [Unknown]
  - Metrorrhagia [Unknown]

NARRATIVE: CASE EVENT DATE: 20170801
